FAERS Safety Report 8421963-3 (Version None)
Quarter: 2012Q2

REPORT INFORMATION
  Report Type: 
  Country: None (occurrence: None)
  Receive Date: 20120608
  Receipt Date: 20120603
  Transmission Date: 20120825
  Serious: No
  Sender: FDA-Public Use
  Company Number: US-TEVA-341868USA

PATIENT
  Sex: Female
  Weight: 42.676 kg

DRUGS (2)
  1. ORTHO [Concomitant]
     Indication: CONTRACEPTION
     Dates: start: 20111201
  2. PLAN B ONE-STEP [Suspect]
     Indication: POST COITAL CONTRACEPTION
     Dosage: 1.5 MILLIGRAM;
     Route: 048
     Dates: start: 20120519, end: 20120519

REACTIONS (8)
  - ABDOMINAL PAIN UPPER [None]
  - NAUSEA [None]
  - MENSTRUATION IRREGULAR [None]
  - BREAST PAIN [None]
  - CHEST PAIN [None]
  - HEADACHE [None]
  - FATIGUE [None]
  - DIZZINESS [None]
